FAERS Safety Report 8620978-X (Version None)
Quarter: 2012Q3

REPORT INFORMATION
  Report Type: 
  Country: None (occurrence: None)
  Receive Date: 20120824
  Receipt Date: 20120813
  Transmission Date: 20120928
  Serious: Yes (Hospitalization, Disabling, Other)
  Sender: FDA-Public Use
  Company Number: US-ELI_LILLY_AND_COMPANY-US201208004352

PATIENT
  Sex: Female

DRUGS (2)
  1. HUMULIN N [Suspect]
     Indication: DIABETES MELLITUS
     Dosage: UNK, UNKNOWN
  2. HUMULIN R [Suspect]
     Indication: DIABETES MELLITUS
     Dosage: UNK UNK, PRN

REACTIONS (13)
  - DYSPHAGIA [None]
  - NEUROPATHY PERIPHERAL [None]
  - CEREBROVASCULAR ACCIDENT [None]
  - MEMORY IMPAIRMENT [None]
  - HIATUS HERNIA [None]
  - VISUAL ACUITY REDUCED [None]
  - CHOKING [None]
  - WRONG DRUG ADMINISTERED [None]
  - HYPOAESTHESIA ORAL [None]
  - HEMIPLEGIA [None]
  - HERPES ZOSTER [None]
  - CONVULSION [None]
  - SPEECH DISORDER [None]
